FAERS Safety Report 10029394 (Version 1)
Quarter: 2014Q1

REPORT INFORMATION
  Report Type: Report from Study
  Country: BR (occurrence: BR)
  Receive Date: 20140322
  Receipt Date: 20140322
  Transmission Date: 20141002
  Serious: Yes (Other)
  Sender: FDA-Public Use
  Company Number: PHHY2014BR034596

PATIENT
  Sex: Male
  Weight: 50 kg

DRUGS (5)
  1. EXELON PATCH [Suspect]
     Dosage: 4.6 MG (PATCH 5CM2), DAILY
     Route: 062
  2. EXELON PATCH [Suspect]
     Dosage: 2 DF (2 PATCHES OF 4.6MG (PATCH 5CM2), DAILY
     Route: 062
  3. QUETIAPINE [Concomitant]
     Indication: NERVOUSNESS
     Dosage: 3 DF (1 TABLET IN THE MORNING AND 2 TABLETS AT NIGHT), DAILY
  4. INSULIN [Concomitant]
     Indication: DIABETES MELLITUS
     Dosage: UNK UKN, UNK (12 NPH)
  5. DRUG THERAPY NOS [Concomitant]
     Indication: HYPERTENSION
     Dosage: UNK UKN, UNK

REACTIONS (8)
  - Diabetes mellitus [Not Recovered/Not Resolved]
  - Amnesia [Not Recovered/Not Resolved]
  - Memory impairment [Not Recovered/Not Resolved]
  - Cerebrovascular accident [Not Recovered/Not Resolved]
  - Hypertension [Not Recovered/Not Resolved]
  - Weight decreased [Not Recovered/Not Resolved]
  - Decreased appetite [Not Recovered/Not Resolved]
  - Drug prescribing error [Not Recovered/Not Resolved]
